FAERS Safety Report 25640361 (Version 1)
Quarter: 2025Q3

REPORT INFORMATION
  Report Type: Spontaneous
  Country: CN (occurrence: CN)
  Receive Date: 20250804
  Receipt Date: 20250804
  Transmission Date: 20251020
  Serious: Yes (Hospitalization, Other)
  Sender: PURDUE
  Company Number: CN-NAPPMUNDI-GBR-2025-0127628

PATIENT
  Age: 62 Year
  Sex: Male
  Weight: 68 kg

DRUGS (2)
  1. OXYCODONE HYDROCHLORIDE [Suspect]
     Active Substance: OXYCODONE HYDROCHLORIDE
     Indication: Tumour pain
     Dosage: 20 MILLIGRAM, Q12H
     Route: 048
     Dates: start: 20250715, end: 20250716
  2. OXYCODONE HYDROCHLORIDE [Suspect]
     Active Substance: OXYCODONE HYDROCHLORIDE
     Dosage: 10 MILLIGRAM, Q12H
     Route: 048
     Dates: start: 20250717, end: 20250718

REACTIONS (7)
  - Hypersensitivity [Recovering/Resolving]
  - Tremor [Recovering/Resolving]
  - Palpitations [Recovering/Resolving]
  - Hyperhidrosis [Recovering/Resolving]
  - Blood pressure increased [Recovering/Resolving]
  - Heart rate increased [Recovering/Resolving]
  - Pruritus [Recovering/Resolving]

NARRATIVE: CASE EVENT DATE: 20250716
